FAERS Safety Report 6380886 (Version 10)
Quarter: 2013Q3

REPORT INFORMATION
  Report Type: Spontaneous
  Country: US (occurrence: US)
  Receive Date: 20070813
  Receipt Date: 20130806
  Transmission Date: 20140515
  Serious: Yes (Death, Other)
  Sender: FDA-Public Use
  Company Number: PHEH2007US10923

PATIENT
  Age: 53 Year
  Sex: Female
  Weight: 120 kg

DRUGS (15)
  1. ZOMETA [Suspect]
     Dates: start: 20020730, end: 200503
  2. XELODA [Concomitant]
     Dates: start: 200502
  3. KYTRIL [Concomitant]
  4. CIPRO ^MILES^ [Concomitant]
     Dosage: 500 MG, QD
  5. FASLODEX [Concomitant]
  6. AROMASIN [Concomitant]
  7. FEMARA [Concomitant]
  8. AMBIEN [Concomitant]
  9. ZOLOFT [Concomitant]
  10. ADVIL [Concomitant]
  11. RADIOTHERAPY [Concomitant]
  12. TAMOXIFEN [Concomitant]
     Dates: start: 200602
  13. LUNESTA [Concomitant]
  14. OXYCODONE/APAP [Concomitant]
  15. RESTORIL [Concomitant]

REACTIONS (35)
  - Death [Fatal]
  - Adenocarcinoma [Unknown]
  - Chronic obstructive pulmonary disease [Unknown]
  - Osteonecrosis of jaw [Unknown]
  - Bone disorder [Unknown]
  - Bone fragmentation [Unknown]
  - Tooth disorder [Unknown]
  - Secretion discharge [Unknown]
  - Jaw disorder [Unknown]
  - Mastication disorder [Unknown]
  - Swelling face [Unknown]
  - General physical health deterioration [Unknown]
  - Toothache [Unknown]
  - Oral pain [Unknown]
  - Tooth fracture [Unknown]
  - Pain [Unknown]
  - Anxiety [Unknown]
  - Decreased interest [Unknown]
  - Metastases to bone [Unknown]
  - Abscess [Unknown]
  - Stomatitis [Unknown]
  - Tuberculosis [Unknown]
  - Osteoporosis [Unknown]
  - Osteomyelitis acute [Unknown]
  - Squamous cell carcinoma [Unknown]
  - Inflammation [Unknown]
  - Purulence [Unknown]
  - Sinusitis [Unknown]
  - Weight decreased [Unknown]
  - Seasonal allergy [Unknown]
  - Nasal septum deviation [Unknown]
  - Erythema [Unknown]
  - Oedema mucosal [Unknown]
  - Exposed bone in jaw [Unknown]
  - Oroantral fistula [Unknown]
